FAERS Safety Report 6406601-3 (Version None)
Quarter: 2009Q4

REPORT INFORMATION
  Report Type: 
  Country: None (occurrence: None)
  Receive Date: 20091014
  Receipt Date: 20091006
  Transmission Date: 20100525
  Serious: Yes (Hospitalization, Other)
  Sender: FDA-Public Use
  Company Number: 2009SP028935

PATIENT
  Sex: Female

DRUGS (1)
  1. MERCILON (DESOGESTREL/ETHINYLESTRADIOL) (DESOGESTREL/ETHINYLESTRADIOL) [Suspect]
     Indication: CONTRACEPTION
     Dosage: ;PO
     Route: 048

REACTIONS (2)
  - HEPATITIS [None]
  - PANCREATITIS [None]
